FAERS Safety Report 6091450-9 (Version None)
Quarter: 2009Q1

REPORT INFORMATION
  Report Type: 
  Country: None (occurrence: None)
  Receive Date: 20090225
  Receipt Date: 20090211
  Transmission Date: 20090719
  Serious: Yes (Hospitalization, Other)
  Sender: FDA-Public Use
  Company Number: US-ELI_LILLY_AND_COMPANY-US200902002391

PATIENT
  Sex: Female

DRUGS (1)
  1. FORTEO [Suspect]

REACTIONS (12)
  - ANAEMIA [None]
  - BILE DUCT OBSTRUCTION [None]
  - BLOOD URINE PRESENT [None]
  - DYSPNOEA [None]
  - FATIGUE [None]
  - HAEMATEMESIS [None]
  - HAEMATOCHEZIA [None]
  - HAEMORRHAGE [None]
  - JAUNDICE [None]
  - MALAISE [None]
  - POST PROCEDURAL HAEMORRHAGE [None]
  - RED BLOOD CELL COUNT DECREASED [None]
